FAERS Safety Report 6442119-X (Version None)
Quarter: 2009Q4

REPORT INFORMATION
  Report Type: 
  Country: None (occurrence: None)
  Receive Date: 20091116
  Receipt Date: 20091104
  Transmission Date: 20100525
  Serious: Yes (Other)
  Sender: FDA-Public Use
  Company Number: PHHY2009BR38371

PATIENT
  Age: 68 Year
  Sex: Male
  Weight: 45 kg

DRUGS (3)
  1. FORASEQ [Suspect]
     Indication: EMPHYSEMA
     Dosage: TWICE A DAY
  2. ALINIA [Concomitant]
  3. SPIRIVA [Concomitant]
     Dosage: 18 MG, UNK

REACTIONS (7)
  - DEPRESSION [None]
  - DEVICE MALFUNCTION [None]
  - DYSPNOEA [None]
  - FEELING ABNORMAL [None]
  - FEELING OF DESPAIR [None]
  - MALAISE [None]
  - NERVOUSNESS [None]
